FAERS Safety Report 13864930 (Version 1)
Quarter: 2017Q3

REPORT INFORMATION
  Report Type: Spontaneous
  Country: FR (occurrence: FR)
  Receive Date: 20170814
  Receipt Date: 20170814
  Transmission Date: 20171127
  Serious: Yes (Hospitalization)
  Sender: FDA-Public Use
  Company Number: FR-PFIZER INC-2017346005

PATIENT
  Age: 62 Year
  Sex: Female

DRUGS (17)
  1. RAMIPRIL. [Concomitant]
     Active Substance: RAMIPRIL
     Dosage: 5 MG, 1X/DAY(MORNING)
  2. NAVELBINE [Suspect]
     Active Substance: VINORELBINE TARTRATE
     Indication: LUNG NEOPLASM MALIGNANT
     Dosage: 47 MG, UNK
     Route: 048
     Dates: start: 20170511, end: 20170713
  3. TERALITHE [Suspect]
     Active Substance: LITHIUM CARBONATE
     Indication: BIPOLAR DISORDER
     Dosage: 1.5 DF, 2X/DAY(MORNING AND EVENING)
     Route: 048
     Dates: end: 20170725
  4. CARBOPLATINE HOSPIRA [Suspect]
     Active Substance: CARBOPLATIN
     Indication: LUNG NEOPLASM MALIGNANT
     Dosage: 480 MG, UNK
     Route: 042
     Dates: start: 20170713, end: 20170713
  5. PARACETAMOL [Concomitant]
     Active Substance: ACETAMINOPHEN
     Dosage: 2 DF, 4X/DAY(MORNING, NOON, EVENING AND BEDTIME) AS NEEDED
  6. SMECTA [Concomitant]
     Active Substance: MONTMORILLONITE
     Dosage: UNK UNK, AS NEEDED
  7. PARKINANE LP [Suspect]
     Active Substance: TRIHEXYPHENIDYL HYDROCHLORIDE
     Indication: PARKINSONISM
     Dosage: 10 MG, 1X/DAY (MORNING)
     Route: 048
  8. ARIPIPRAZOLE ARROW [Suspect]
     Active Substance: ARIPIPRAZOLE
     Indication: BIPOLAR DISORDER
     Dosage: 30 MG, 1X/DAY (MORNING)
     Route: 048
  9. FLUCONAZOLE ARROW [Suspect]
     Active Substance: FLUCONAZOLE
     Indication: PROPHYLAXIS
     Dosage: 1 DF (ONE SPOON), 1X/DAY(MORNING)
     Route: 048
  10. MOVICOL [Concomitant]
     Active Substance: POLYETHYLENE GLYCOL 3350\POTASSIUM CHLORIDE\SODIUM BICARBONATE\SODIUM CHLORIDE
     Dosage: 2 DF, 2X/DAY(MORNING AND NOON)
  11. CISPLATIN ACCORD [Suspect]
     Active Substance: CISPLATIN
     Indication: LUNG NEOPLASM MALIGNANT
     Dosage: 194 MG, UNK
     Route: 042
     Dates: start: 20170512, end: 20170623
  12. LOXAPAC [Suspect]
     Active Substance: LOXAPINE SUCCINATE
     Indication: BIPOLAR DISORDER
     Dosage: 25 MG, 4X/DAY, 25 MG IN THE MORNING AND NOON, AND 50 MG (2 DF) AT BEDTIME
     Route: 048
  13. PANTOPRAZOLE [Concomitant]
     Active Substance: PANTOPRAZOLE
     Dosage: 40 MG, 1X/DAY (MORNING)
  14. HYDROXYZINE [Concomitant]
     Active Substance: HYDROXYZINE HYDROCHLORIDE
     Dosage: 25 MG, AS NEEDED
  15. TRAMADOL. [Concomitant]
     Active Substance: TRAMADOL
     Dosage: 100 MG, 2X/DAY AS NEEDED
  16. SETOFILM [Concomitant]
     Active Substance: ONDANSETRON
     Dosage: 8 MG, 2X/DAY FOR 3 DAYS EVERY EACH CHEMOTHERAPY SESSION
  17. SERESTA [Suspect]
     Active Substance: OXAZEPAM
     Indication: ANXIETY
     Dosage: 50 MG, 2X/DAY
     Route: 048

REACTIONS (1)
  - Encephalopathy [Recovered/Resolved]

NARRATIVE: CASE EVENT DATE: 20170720
